FAERS Safety Report 24609675 (Version 1)
Quarter: 2024Q4

REPORT INFORMATION
  Report Type: Spontaneous
  Country: US (occurrence: US)
  Receive Date: 20241112
  Receipt Date: 20241112
  Transmission Date: 20250115
  Serious: No
  Sender: SANOFI AVENTIS
  Company Number: US-SA-2024SA325159

PATIENT
  Age: 19 Year
  Sex: Female

DRUGS (1)
  1. AGALSIDASE BETA [Suspect]
     Active Substance: AGALSIDASE BETA
     Dosage: UNK

REACTIONS (1)
  - Globotriaosylsphingosine increased [Not Recovered/Not Resolved]

NARRATIVE: CASE EVENT DATE: 20231102
